FAERS Safety Report 15160815 (Version 3)
Quarter: 2018Q3

REPORT INFORMATION
  Report Type: Spontaneous
  Country: US (occurrence: US)
  Receive Date: 20180718
  Receipt Date: 20180822
  Transmission Date: 20181010
  Serious: Yes (Death, Hospitalization)
  Sender: FDA-Public Use
  Company Number: US-BEH-2018092790

PATIENT
  Age: 68 Year
  Sex: Female

DRUGS (1)
  1. HIZENTRA [Suspect]
     Active Substance: HUMAN IMMUNOGLOBULIN G
     Indication: IMMUNODEFICIENCY COMMON VARIABLE
     Dosage: 10 G, QW
     Route: 058
     Dates: start: 2016, end: 2018

REACTIONS (1)
  - Bladder cancer [Fatal]

NARRATIVE: CASE EVENT DATE: 201612
